FAERS Safety Report 13771601 (Version 1)
Quarter: 2017Q3

REPORT INFORMATION
  Report Type: Spontaneous
  Country: US (occurrence: US)
  Receive Date: 20170720
  Receipt Date: 20170720
  Transmission Date: 20171127
  Serious: No
  Sender: FDA-Public Use
  Company Number: US-PFIZER INC-2017308114

PATIENT
  Sex: Male

DRUGS (1)
  1. XELJANZ XR [Suspect]
     Active Substance: TOFACITINIB CITRATE
     Dosage: 11 MG, 1X/DAY DAILY

REACTIONS (10)
  - Bursitis [Unknown]
  - Joint effusion [Unknown]
  - Feeling hot [Unknown]
  - Skin exfoliation [Recovering/Resolving]
  - Blood creatinine increased [Unknown]
  - Synovitis [Unknown]
  - Pain [Unknown]
  - Occult blood positive [Unknown]
  - Joint range of motion decreased [Unknown]
  - Anaemia [Unknown]
